FAERS Safety Report 17902546 (Version 2)
Quarter: 2022Q1

REPORT INFORMATION
  Report Type: Spontaneous
  Country: CO (occurrence: CO)
  Receive Date: 20200616
  Receipt Date: 20220225
  Transmission Date: 20220423
  Serious: Yes (Hospitalization, Other)
  Sender: FDA-Public Use
  Company Number: CO-LUPIN PHARMACEUTICALS INC.-2020-02860

PATIENT
  Age: 64 Year
  Sex: Male

DRUGS (6)
  1. MOXIFLOXACIN HYDROCHLORIDE [Suspect]
     Active Substance: MOXIFLOXACIN HYDROCHLORIDE
     Indication: Antibiotic prophylaxis
     Dosage: UNK
     Route: 031
  2. BETAMETHASONE [Suspect]
     Active Substance: BETAMETHASONE
     Indication: Eye inflammation
     Dosage: UNK
     Route: 030
  3. PREDNISOLONE ACETATE [Suspect]
     Active Substance: PREDNISOLONE ACETATE
     Indication: Eye inflammation
     Dosage: UNK
     Route: 061
  4. TIMOLOL [Concomitant]
     Active Substance: TIMOLOL
     Indication: Ocular hypertension
     Dosage: UNK
     Route: 061
  5. ACYCLOVIR [Concomitant]
     Active Substance: ACYCLOVIR
     Indication: Uveitis
     Dosage: UNK
     Route: 048
  6. VALACYCLOVIR [Concomitant]
     Active Substance: VALACYCLOVIR HYDROCHLORIDE
     Indication: Uveitis
     Dosage: UNK
     Route: 065

REACTIONS (3)
  - Iridocyclitis [Recovering/Resolving]
  - Drug ineffective [Unknown]
  - Iris transillumination defect [Recovering/Resolving]
